FAERS Safety Report 18961648 (Version 1)
Quarter: 2021Q1

REPORT INFORMATION
  Report Type: Spontaneous
  Country: GB (occurrence: GB)
  Receive Date: 20210303
  Receipt Date: 20210303
  Transmission Date: 20210420
  Serious: Yes (Other)
  Sender: FDA-Public Use
  Company Number: GB-MICRO LABS LIMITED-ML2021-00610

PATIENT
  Age: 69 Year
  Sex: Female
  Weight: 94 kg

DRUGS (1)
  1. AMOXICILLIN/CLAVULANIC ACID [Suspect]
     Active Substance: AMOXICILLIN\CLAVULANIC ACID
     Indication: ILL-DEFINED DISORDER
     Dates: start: 20210217

REACTIONS (3)
  - Lip swelling [Recovered/Resolved]
  - Blister [Unknown]
  - Lip pain [Unknown]

NARRATIVE: CASE EVENT DATE: 20210217
